FAERS Safety Report 6124969-2 (Version None)
Quarter: 2009Q1

REPORT INFORMATION
  Report Type: 
  Country: None (occurrence: None)
  Receive Date: 20090319
  Receipt Date: 20090316
  Transmission Date: 20090719
  Serious: No
  Sender: FDA-Public Use
  Company Number: US-B.I. PHARMACEUTICALS,INC./RIDGEFIELD-2009-BP-03216BP

PATIENT
  Age: 71 Year
  Sex: Female

DRUGS (7)
  1. ZANTAC [Suspect]
     Indication: DYSPEPSIA
     Dosage: 150MG
     Route: 048
     Dates: start: 20090201
  2. ZANTAC [Suspect]
     Indication: GASTROOESOPHAGEAL REFLUX DISEASE
  3. MAXIDE-TRIAMT-HCTZ [Concomitant]
     Indication: BLOOD PRESSURE INCREASED
  4. BENZEPRIL [Concomitant]
     Indication: BLOOD PRESSURE INCREASED
  5. FOSAMAX [Concomitant]
     Indication: OSTEOPENIA
  6. ULTRAM [Concomitant]
     Indication: BACK PAIN
  7. AMBIEN [Concomitant]
     Indication: INSOMNIA

REACTIONS (2)
  - ABDOMINAL PAIN UPPER [None]
  - NAUSEA [None]
